FAERS Safety Report 7574584-9 (Version None)
Quarter: 2011Q2

REPORT INFORMATION
  Report Type: 
  Country: None (occurrence: None)
  Receive Date: 20110627
  Receipt Date: 20101021
  Transmission Date: 20111010
  Serious: No
  Sender: FDA-Public Use
  Company Number: US-BAYER-201040379NA

PATIENT
  Sex: Female

DRUGS (4)
  1. DIFLUCAN [Concomitant]
     Indication: FUNGAL INFECTION
  2. ANTIBIOTICS [Concomitant]
     Indication: BRONCHITIS
  3. MIRENA [Suspect]
     Indication: MENORRHAGIA
     Dosage: UNK
     Dates: start: 20080101
  4. ANTIBIOTICS [Concomitant]
     Indication: EAR INFECTION

REACTIONS (3)
  - AMENORRHOEA [None]
  - VAGINAL HAEMORRHAGE [None]
  - ABDOMINAL PAIN [None]
